FAERS Safety Report 9007338 (Version 1)
Quarter: 2013Q1

REPORT INFORMATION
  Report Type: Spontaneous
  Country: BD (occurrence: BD)
  Receive Date: 20130110
  Receipt Date: 20130110
  Transmission Date: 20140127
  Serious: Yes (Other)
  Sender: FDA-Public Use
  Company Number: PHHY2013BD002280

PATIENT
  Age: 60 Year
  Sex: Male

DRUGS (2)
  1. EXELON PATCH [Suspect]
     Indication: DEMENTIA
     Dosage: 9.5 MG, PATCH 10
     Route: 062
     Dates: start: 201206, end: 201210
  2. RIVAMER [Concomitant]
     Indication: DEMENTIA
     Dosage: 4.5 MG, UNK
     Route: 048
     Dates: start: 201211

REACTIONS (2)
  - Cerebral haemorrhage [Not Recovered/Not Resolved]
  - General physical condition abnormal [Unknown]
